FAERS Safety Report 11467816 (Version 4)
Quarter: 2015Q4

REPORT INFORMATION
  Report Type: Spontaneous
  Country: JP (occurrence: JP)
  Receive Date: 20150908
  Receipt Date: 20151028
  Transmission Date: 20160304
  Serious: Yes (Life-Threatening, Other)
  Sender: FDA-Public Use
  Company Number: JP-BAXALTA-2015BLT001283

PATIENT
  Age: 64 Year
  Sex: Male
  Weight: 68 kg

DRUGS (21)
  1. ADVATE [Interacting]
     Active Substance: ANTIHEMOPHILIC FACTOR, HUMAN RECOMBINANT
     Indication: FACTOR VIII DEFICIENCY
     Dosage: UNK
     Route: 042
  2. ADVATE [Interacting]
     Active Substance: ANTIHEMOPHILIC FACTOR, HUMAN RECOMBINANT
     Dosage: 500-1000 IU
     Route: 040
     Dates: start: 20150723, end: 20150725
  3. ADVATE [Interacting]
     Active Substance: ANTIHEMOPHILIC FACTOR, HUMAN RECOMBINANT
     Dosage: UNK
  4. TOUCHRON [Concomitant]
     Indication: PHLEBITIS
     Dosage: 1 PIECE/TIME/DAY
     Route: 062
     Dates: start: 20150805, end: 20150821
  5. YOUPIS [Concomitant]
     Indication: CONSTIPATION
     Dosage: 10 DROPS/TIME/DAY, UNK
     Route: 048
     Dates: start: 20150808
  6. LEVOFLOXACIN. [Concomitant]
     Active Substance: LEVOFLOXACIN
     Indication: PYELONEPHRITIS
     Dosage: 500 G/TIME/DAY, UNK
     Route: 048
     Dates: start: 20150804, end: 20150814
  7. ADVATE [Interacting]
     Active Substance: ANTIHEMOPHILIC FACTOR, HUMAN RECOMBINANT
     Dosage: 1000-3000 IU
     Route: 040
     Dates: start: 20150724, end: 20150727
  8. ADVATE [Interacting]
     Active Substance: ANTIHEMOPHILIC FACTOR, HUMAN RECOMBINANT
     Indication: RENAL HAEMORRHAGE
     Dosage: 250 U, UNK
     Dates: start: 20150723, end: 20150723
  9. ADVATE [Interacting]
     Active Substance: ANTIHEMOPHILIC FACTOR, HUMAN RECOMBINANT
     Dosage: UNK
     Dates: start: 20150723, end: 20150725
  10. ADVATE [Interacting]
     Active Substance: ANTIHEMOPHILIC FACTOR, HUMAN RECOMBINANT
     Dosage: UNK
     Dates: start: 20150723, end: 20150725
  11. ADVATE [Interacting]
     Active Substance: ANTIHEMOPHILIC FACTOR, HUMAN RECOMBINANT
     Dosage: 2000 IU, 1.1ML-1.2ML/HR
     Route: 042
     Dates: start: 20150727, end: 20150805
  12. ADVATE [Interacting]
     Active Substance: ANTIHEMOPHILIC FACTOR, HUMAN RECOMBINANT
     Dosage: 1000 IU, UNK
     Route: 040
     Dates: start: 20150806, end: 20150807
  13. ADVATE [Interacting]
     Active Substance: ANTIHEMOPHILIC FACTOR, HUMAN RECOMBINANT
     Dosage: UNK
     Dates: start: 20150727, end: 20150730
  14. ADVATE [Interacting]
     Active Substance: ANTIHEMOPHILIC FACTOR, HUMAN RECOMBINANT
     Dosage: UNK
     Dates: start: 20150727, end: 20150805
  15. ADVATE [Interacting]
     Active Substance: ANTIHEMOPHILIC FACTOR, HUMAN RECOMBINANT
     Dosage: 2000 IU, UNK
     Route: 040
     Dates: start: 20150723, end: 20150724
  16. ADVATE [Interacting]
     Active Substance: ANTIHEMOPHILIC FACTOR, HUMAN RECOMBINANT
     Dosage: UNK
     Dates: start: 20150724, end: 20150727
  17. ADVATE [Interacting]
     Active Substance: ANTIHEMOPHILIC FACTOR, HUMAN RECOMBINANT
     Dosage: UNK
  18. ADVATE [Interacting]
     Active Substance: ANTIHEMOPHILIC FACTOR, HUMAN RECOMBINANT
     Dosage: 500-1000 IU, 1.1ML-1.2ML/HR
     Route: 042
     Dates: start: 20150727, end: 20150730
  19. ADVATE [Interacting]
     Active Substance: ANTIHEMOPHILIC FACTOR, HUMAN RECOMBINANT
     Dosage: UNK
     Dates: start: 20150727, end: 20150730
  20. ADVATE [Interacting]
     Active Substance: ANTIHEMOPHILIC FACTOR, HUMAN RECOMBINANT
     Dosage: 4000-6000 IU, 1.1ML-1.2ML/HR
     Route: 042
     Dates: start: 20150727, end: 20150805
  21. CEFTRIAXONE. [Suspect]
     Active Substance: CEFTRIAXONE
     Indication: PYELONEPHRITIS
     Dosage: 2 G/TIME/DAY, UNK
     Route: 042
     Dates: start: 20150729, end: 20150803

REACTIONS (7)
  - Anaemia [Recovering/Resolving]
  - Renal haematoma [Unknown]
  - Pyelonephritis [Unknown]
  - Hepatic function abnormal [Unknown]
  - Muscle haemorrhage [Recovered/Resolved with Sequelae]
  - Haemorrhage [Unknown]
  - Factor VIII inhibition [Not Recovered/Not Resolved]

NARRATIVE: CASE EVENT DATE: 20150810
